FAERS Safety Report 4417568-1 (Version None)
Quarter: 2004Q3

REPORT INFORMATION
  Report Type: 
  Country: None (occurrence: None)
  Receive Date: 20040804
  Receipt Date: 20040716
  Transmission Date: 20050211
  Serious: Yes (Other)
  Sender: FDA-Public Use
  Company Number: 2004049178

PATIENT
  Age: 42 Year
  Sex: Female

DRUGS (1)
  1. LISTERINE (EUCALYPTOL, MENTHOL, METHYL SACICYLATE, THYMOL) [Suspect]
     Indication: DENTAL CARE
     Dosage: UNSPECIFIED AMOUNT ONCE, ORAL TOPICAL
     Route: 048
     Dates: start: 20040701, end: 20040701

REACTIONS (4)
  - FACE OEDEMA [None]
  - HYPOAESTHESIA ORAL [None]
  - RESPIRATORY DISTRESS [None]
  - TACHYCARDIA [None]
